FAERS Safety Report 23326718 (Version 1)
Quarter: 2023Q4

REPORT INFORMATION
  Report Type: Spontaneous
  Country: US (occurrence: US)
  Receive Date: 20231221
  Receipt Date: 20231221
  Transmission Date: 20240110
  Serious: No
  Sender: FDA-Public Use
  Company Number: US-PFIZER INC-202200729107

PATIENT
  Age: 76 Year
  Sex: Male

DRUGS (4)
  1. XELJANZ [Suspect]
     Active Substance: TOFACITINIB CITRATE
     Dosage: 5 MG, 1X/DAY
     Route: 048
     Dates: start: 202203
  2. XELJANZ [Suspect]
     Active Substance: TOFACITINIB CITRATE
     Dosage: 5 MG, 2X/DAY
  3. FAMOTIDINE [Concomitant]
     Active Substance: FAMOTIDINE
  4. DONEPEZIL [Concomitant]
     Active Substance: DONEPEZIL

REACTIONS (3)
  - Full blood count abnormal [Unknown]
  - Hypoacusis [Unknown]
  - Off label use [Unknown]
